FAERS Safety Report 17398487 (Version 1)
Quarter: 2020Q1

REPORT INFORMATION
  Report Type: Spontaneous
  Country: DE (occurrence: DE)
  Receive Date: 20200210
  Receipt Date: 20200210
  Transmission Date: 20200409
  Serious: Yes (Other)
  Sender: FDA-Public Use
  Company Number: DE-MYLANLABS-2020M1014469

PATIENT
  Sex: Male

DRUGS (7)
  1. CANDESARTANCILEXETIL MYLAN 32 MG TABLETTEN [Suspect]
     Active Substance: CANDESARTAN CILEXETIL
     Indication: PRODUCT USED FOR UNKNOWN INDICATION
     Dosage: UNK
     Dates: start: 201911
  2. VALSARTAN DURA 320 MG FILMTABLETTEN [Suspect]
     Active Substance: VALSARTAN
     Dosage: 80 MILLIGRAM, QD
     Dates: start: 201801, end: 20190208
  3. VALSARTAN DURA 320 MG FILMTABLETTEN [Suspect]
     Active Substance: VALSARTAN
     Dosage: 80 MILLIGRAM, QD
     Dates: start: 201902, end: 201905
  4. VALSARTAN HEUMANN [Suspect]
     Active Substance: VALSARTAN
     Indication: PRODUCT USED FOR UNKNOWN INDICATION
     Dosage: 80 MILLIGRAM, QD
     Dates: start: 201710, end: 201801
  5. CANDESARTAN HEXAL [Suspect]
     Active Substance: CANDESARTAN CILEXETIL
     Indication: PRODUCT USED FOR UNKNOWN INDICATION
     Dosage: UNK
     Dates: start: 201905, end: 201911
  6. VALSARTAN DURA 320 MG FILMTABLETTEN [Suspect]
     Active Substance: VALSARTAN
     Indication: PRODUCT USED FOR UNKNOWN INDICATION
     Dosage: 80 MILLIGRAM, QD
     Dates: start: 20160818, end: 201710
  7. CANDESARTAN 1A PHARMA [Suspect]
     Active Substance: CANDESARTAN CILEXETIL
     Indication: PRODUCT USED FOR UNKNOWN INDICATION
     Dosage: UNK
     Dates: start: 201902, end: 201905

REACTIONS (3)
  - Fear of disease [Unknown]
  - Loss of personal independence in daily activities [Unknown]
  - Mental impairment [Unknown]
